FAERS Safety Report 16091245 (Version 1)
Quarter: 2019Q1

REPORT INFORMATION
  Report Type: Spontaneous
  Country: TR (occurrence: TR)
  Receive Date: 20190319
  Receipt Date: 20190319
  Transmission Date: 20190418
  Serious: Yes (Other)
  Sender: FDA-Public Use
  Company Number: TR-NOVOPROD-652474

PATIENT
  Age: 56 Year
  Sex: Male
  Weight: 112 kg

DRUGS (4)
  1. LEVEMIR [Suspect]
     Active Substance: INSULIN DETEMIR
     Indication: TYPE 2 DIABETES MELLITUS
     Dosage: 28 IU, QD
     Route: 058
     Dates: start: 20130307
  2. JANUVIA [Concomitant]
     Active Substance: SITAGLIPTIN PHOSPHATE
     Indication: TYPE 2 DIABETES MELLITUS
     Dosage: ONCE DAILY
     Route: 048
     Dates: start: 20160307
  3. NOVORAPID [Suspect]
     Active Substance: INSULIN ASPART
     Indication: TYPE 2 DIABETES MELLITUS
     Dosage: 57 IU, QD (19 U THREE TIMES A DAY)
     Route: 058
     Dates: start: 20130307
  4. DIAFORMIN [Concomitant]
     Active Substance: METFORMIN HYDROCHLORIDE
     Indication: TYPE 2 DIABETES MELLITUS
     Dosage: TWICE A DAY
     Route: 048
     Dates: start: 20130307

REACTIONS (7)
  - Increased appetite [Unknown]
  - Blood glucose increased [Recovered/Resolved]
  - Weight increased [Not Recovered/Not Resolved]
  - Cerebrovascular accident [Recovered/Resolved]
  - Cerebellar embolism [Not Recovered/Not Resolved]
  - Blindness unilateral [Unknown]
  - Blood pressure increased [Recovering/Resolving]
